FAERS Safety Report 19284868 (Version 1)
Quarter: 2021Q2

REPORT INFORMATION
  Report Type: Spontaneous
  Country: CA (occurrence: CA)
  Receive Date: 20210521
  Receipt Date: 20210521
  Transmission Date: 20210717
  Serious: Yes (Other)
  Sender: FDA-Public Use
  Company Number: CA-ROCHE-2831374

PATIENT
  Sex: Female

DRUGS (14)
  1. METHOTREXATE. [Concomitant]
     Active Substance: METHOTREXATE
     Indication: RHEUMATOID ARTHRITIS
  2. SALMO SALAR OIL [Concomitant]
     Active Substance: ATLANTIC SALMON OIL
  3. CALCIUM GLUCONATE. [Concomitant]
     Active Substance: CALCIUM GLUCONATE
  4. LOSEC [Concomitant]
     Active Substance: OMEPRAZOLE
  5. TYLENOL [Concomitant]
     Active Substance: ACETAMINOPHEN
  6. MOTRIN [Concomitant]
     Active Substance: IBUPROFEN
  7. NAPROSYN E [Concomitant]
     Active Substance: NAPROXEN
  8. ACTEMRA [Suspect]
     Active Substance: TOCILIZUMAB
     Indication: PRODUCT USED FOR UNKNOWN INDICATION
     Route: 065
  9. ENBREL [Suspect]
     Active Substance: ETANERCEPT
     Indication: PRODUCT USED FOR UNKNOWN INDICATION
     Route: 065
  10. RITUXIMAB. [Suspect]
     Active Substance: RITUXIMAB
     Indication: PRODUCT USED FOR UNKNOWN INDICATION
     Route: 065
  11. ERGOCALCIFEROL. [Concomitant]
     Active Substance: ERGOCALCIFEROL
  12. HUMIRA [Suspect]
     Active Substance: ADALIMUMAB
     Indication: PRODUCT USED FOR UNKNOWN INDICATION
     Route: 058
  13. XELJANZ [Concomitant]
     Active Substance: TOFACITINIB CITRATE
     Indication: RHEUMATOID ARTHRITIS
  14. SULFASALAZINE. [Concomitant]
     Active Substance: SULFASALAZINE

REACTIONS (8)
  - Drug ineffective [Unknown]
  - Anaemia [Unknown]
  - Pain [Unknown]
  - Joint noise [Unknown]
  - Musculoskeletal stiffness [Unknown]
  - Arthralgia [Unknown]
  - Joint swelling [Unknown]
  - Bursitis [Unknown]
